FAERS Safety Report 16535109 (Version 1)
Quarter: 2019Q3

REPORT INFORMATION
  Report Type: Spontaneous
  Country: US (occurrence: US)
  Receive Date: 20190705
  Receipt Date: 20190705
  Transmission Date: 20191004
  Serious: No
  Sender: FDA-Public Use
  Company Number: US-LUPIN PHARMACEUTICALS INC.-2019-04184

PATIENT
  Age: 77 Year
  Sex: Female

DRUGS (1)
  1. DULOXETINE DELAYED-RELEASE CAPSULES 40 MG [Suspect]
     Active Substance: DULOXETINE
     Indication: BURNING MOUTH SYNDROME
     Dosage: UNK
     Route: 065
     Dates: start: 20190601

REACTIONS (2)
  - Drug ineffective for unapproved indication [Unknown]
  - Burning mouth syndrome [Unknown]
